FAERS Safety Report 8200100-4 (Version None)
Quarter: 2012Q1

REPORT INFORMATION
  Report Type: 
  Country: None (occurrence: None)
  Receive Date: 20120312
  Receipt Date: 20120305
  Transmission Date: 20120608
  Serious: Yes (Hospitalization, Other)
  Sender: FDA-Public Use
  Company Number: US-BAYER-201029549NA

PATIENT
  Age: 40 Year
  Sex: Female
  Weight: 61 kg

DRUGS (9)
  1. PRISTIQ [Concomitant]
     Indication: ANXIETY
     Dosage: UNK
     Dates: start: 20000101
  2. YAZ [Suspect]
     Indication: PRODUCT USED FOR UNKNOWN INDICATION
     Dosage: UNK
     Route: 048
     Dates: start: 20080623, end: 20080714
  3. SULFACETAMIDE SODIUM [SULFACETAMIDE] [Concomitant]
     Dosage: 10 %, UNK
  4. WELLBUTRIN XL [Concomitant]
     Indication: ANXIETY
     Dosage: 300 MG, UNK
  5. LOESTRIN FE 1/20 [Concomitant]
  6. CITALOPRAM HYDROBROMIDE [Concomitant]
     Dosage: 20 MG, UNK
  7. CELESTIAL SEASONINGS [Concomitant]
     Indication: ANXIETY
     Dosage: UNK
     Dates: start: 20000101
  8. YAZ [Suspect]
     Dosage: UNK
     Route: 048
     Dates: start: 20060601
  9. CELEXA [Concomitant]
     Indication: ANXIETY
     Dosage: UNK
     Dates: start: 20000101

REACTIONS (1)
  - PULMONARY EMBOLISM [None]
